FAERS Safety Report 7465493-4 (Version None)
Quarter: 2011Q1

REPORT INFORMATION
  Report Type: 
  Country: None (occurrence: None)
  Receive Date: 20110302
  Receipt Date: 20100920
  Transmission Date: 20110831
  Serious: Yes (Life-Threatening, Hospitalization)
  Sender: FDA-Public Use
  Company Number: 163-21880-10072290

PATIENT
  Age: 56 Year
  Sex: Female

DRUGS (15)
  1. COREG [Concomitant]
  2. DIGOXIN [Concomitant]
  3. LASIX [Concomitant]
  4. LYRICA [Concomitant]
  5. DILAUDID [Concomitant]
  6. REVLIMID [Suspect]
     Indication: MULTIPLE MYELOMA
     Dosage: 25 MG, 1 IN 1 D, PO, 15 MG, 1 IN 1 D, PO, 15 MG, DAILY FOR 21/28 DAYS, PO
     Route: 048
     Dates: start: 20080701, end: 20081201
  7. REVLIMID [Suspect]
     Indication: MULTIPLE MYELOMA
     Dosage: 25 MG, 1 IN 1 D, PO, 15 MG, 1 IN 1 D, PO, 15 MG, DAILY FOR 21/28 DAYS, PO
     Route: 048
     Dates: start: 20100401
  8. REVLIMID [Suspect]
     Indication: MULTIPLE MYELOMA
     Dosage: 25 MG, 1 IN 1 D, PO, 15 MG, 1 IN 1 D, PO, 15 MG, DAILY FOR 21/28 DAYS, PO
     Route: 048
     Dates: start: 20081201
  9. EFFEXOR [Concomitant]
  10. ATACAND [Concomitant]
  11. DEXAMETHASONE [Concomitant]
  12. AMIODARONE (AMIODARONE) [Concomitant]
  13. ZOFRAN [Concomitant]
  14. POTASSIUM CHLORIDE [Concomitant]
  15. DIURETICS (DIURETICS) [Concomitant]

REACTIONS (4)
  - HYPOTENSION [None]
  - DEHYDRATION [None]
  - CARDIAC FAILURE CONGESTIVE [None]
  - RENAL FAILURE [None]
